FAERS Safety Report 14842816 (Version 1)
Quarter: 2018Q2

REPORT INFORMATION
  Report Type: Spontaneous
  Country: GR (occurrence: GR)
  Receive Date: 20180503
  Receipt Date: 20180503
  Transmission Date: 20180711
  Serious: Yes (Other)
  Sender: FDA-Public Use
  Company Number: PHHY2017GR170395

PATIENT
  Age: 63 Year
  Sex: Male

DRUGS (9)
  1. HYDROCHLOROTHIAZIDE SANDOZ [Suspect]
     Active Substance: HYDROCHLOROTHIAZIDE
     Indication: HYPERTENSION
     Dosage: UNK
     Route: 065
  2. SODIUM VALPROATE [Concomitant]
     Active Substance: VALPROATE SODIUM
     Indication: CENTRAL NERVOUS SYSTEM LESION
  3. AMLODIPINE [Suspect]
     Active Substance: AMLODIPINE BESYLATE
     Indication: HYPERTENSIVE ENCEPHALOPATHY
  4. SODIUM VALPROATE [Concomitant]
     Active Substance: VALPROATE SODIUM
     Indication: METASTASES TO CENTRAL NERVOUS SYSTEM
     Dosage: UNK
     Route: 065
  5. AMLODIPINE [Suspect]
     Active Substance: AMLODIPINE BESYLATE
     Indication: HYPERTENSION
     Dosage: UNK
     Route: 065
  6. IRBESARTAN. [Suspect]
     Active Substance: IRBESARTAN
     Indication: HYPERTENSIVE ENCEPHALOPATHY
  7. IRBESARTAN. [Suspect]
     Active Substance: IRBESARTAN
     Indication: HYPERTENSION
     Dosage: UNK
     Route: 065
  8. HYDROCHLOROTHIAZIDE SANDOZ [Suspect]
     Active Substance: HYDROCHLOROTHIAZIDE
     Indication: HYPERTENSIVE ENCEPHALOPATHY
  9. HALOPERIDOL. [Concomitant]
     Active Substance: HALOPERIDOL
     Indication: METASTASES TO CENTRAL NERVOUS SYSTEM
     Dosage: UNK
     Route: 065

REACTIONS (4)
  - Blood creatinine increased [Recovered/Resolved]
  - Product use in unapproved indication [Unknown]
  - Renal artery stenosis [Recovered/Resolved]
  - Therapeutic response decreased [Unknown]
